FAERS Safety Report 4764695-5 (Version None)
Quarter: 2005Q3

REPORT INFORMATION
  Report Type: 
  Country: None (occurrence: None)
  Receive Date: 20050909
  Receipt Date: 20050427
  Transmission Date: 20060218
  Serious: Yes (Hospitalization)
  Sender: FDA-Public Use
  Company Number: US-MERCK-0505USA00251

PATIENT
  Age: 76 Year
  Sex: Female
  Weight: 75 kg

DRUGS (11)
  1. VIOXX [Suspect]
     Indication: ARTHRITIS
     Route: 048
     Dates: start: 19990812, end: 20030101
  2. VIOXX [Suspect]
     Route: 048
     Dates: start: 19990812, end: 20030101
  3. ATENOLOL [Concomitant]
     Route: 065
  4. SYNTHROID [Concomitant]
     Route: 065
  5. CLINDAMYCIN [Concomitant]
     Route: 065
  6. ACETAMINOPHEN AND OXYCODONE HYDROCHLORIDE [Concomitant]
     Route: 065
  7. ZANAFLEX [Concomitant]
     Route: 065
  8. PRILOSEC [Concomitant]
     Route: 065
  9. CARTIA (ASPIRIN) [Concomitant]
     Route: 065
  10. FOLIC ACID [Concomitant]
     Route: 065
  11. ACETAMINOPHEN AND HYDROCODONE BITARTRATE [Concomitant]
     Route: 065

REACTIONS (6)
  - ARTHROPATHY [None]
  - ATRIAL FIBRILLATION [None]
  - CEREBROVASCULAR ACCIDENT [None]
  - FALL [None]
  - GASTRIC DISORDER [None]
  - HYPERTENSION [None]
